FAERS Safety Report 9003157 (Version 4)
Quarter: 2013Q2

REPORT INFORMATION
  Report Type: Spontaneous
  Country: US (occurrence: US)
  Receive Date: 20130108
  Receipt Date: 20130418
  Transmission Date: 20140414
  Serious: Yes (Hospitalization, Disabling, Other)
  Sender: FDA-Public Use
  Company Number: US-009507513-1212USA010566

PATIENT
  Sex: Female
  Weight: 53.97 kg

DRUGS (8)
  1. FOSAMAX [Suspect]
     Indication: OSTEOPOROSIS
     Dosage: 10 MG, QD
     Route: 048
     Dates: start: 20000810
  2. FOSAMAX [Suspect]
     Indication: OSTEOPENIA
     Dosage: 70 MG, QW
     Route: 048
     Dates: start: 20020402, end: 200909
  3. FOSAMAX [Suspect]
     Indication: OSTEOPOROSIS
     Dosage: 70 MG, QW
     Route: 048
     Dates: start: 200802, end: 200902
  4. FOSAMAX [Suspect]
     Indication: OSTEOPENIA
  5. FORTEO [Suspect]
     Indication: OSTEOPOROSIS
     Dosage: UNK
     Dates: start: 2009, end: 2011
  6. PROTONIX [Concomitant]
     Indication: GASTROOESOPHAGEAL REFLUX DISEASE
  7. FLUOXETINE [Concomitant]
     Indication: DEPRESSION
  8. ESTROGENS (UNSPECIFIED) [Concomitant]
     Indication: OSTEOPOROSIS

REACTIONS (74)
  - Femur fracture [Not Recovered/Not Resolved]
  - Open reduction of fracture [Unknown]
  - Femur fracture [Not Recovered/Not Resolved]
  - Open reduction of fracture [Unknown]
  - Femur fracture [Not Recovered/Not Resolved]
  - Open reduction of fracture [Unknown]
  - Femur fracture [Not Recovered/Not Resolved]
  - Surgery [Unknown]
  - Femur fracture [Not Recovered/Not Resolved]
  - Open reduction of fracture [Unknown]
  - Femur fracture [Not Recovered/Not Resolved]
  - Open reduction of fracture [Unknown]
  - Hip surgery [Unknown]
  - Hip surgery [Unknown]
  - Spinal operation [Unknown]
  - Cholecystectomy [Unknown]
  - Convulsion [Unknown]
  - Craniotomy [Unknown]
  - Osteoporosis [Not Recovered/Not Resolved]
  - Osteoporosis [Unknown]
  - Stress fracture [Not Recovered/Not Resolved]
  - Femur fracture [Not Recovered/Not Resolved]
  - Femur fracture [Unknown]
  - Stress fracture [Recovered/Resolved]
  - Pain [Unknown]
  - Low turnover osteopathy [Not Recovered/Not Resolved]
  - Device dislocation [Unknown]
  - Device failure [Unknown]
  - Device ineffective [Unknown]
  - Tooth extraction [Unknown]
  - Anxiety [Unknown]
  - Fear [Unknown]
  - Osteopenia [Unknown]
  - Gait disturbance [Unknown]
  - Kyphoscoliosis [Unknown]
  - Hyperlipidaemia [Unknown]
  - Vitamin B12 deficiency [Unknown]
  - Gastritis atrophic [Unknown]
  - Animal bite [Unknown]
  - Cardiac murmur [Unknown]
  - Fall [Unknown]
  - Angina pectoris [Unknown]
  - Malabsorption [Unknown]
  - Ligament sprain [Unknown]
  - Urinary incontinence [Unknown]
  - Rheumatoid arthritis [Unknown]
  - Transfusion reaction [Unknown]
  - Bronchitis chronic [Not Recovered/Not Resolved]
  - Nocturia [Unknown]
  - Coordination abnormal [Unknown]
  - Fall [Unknown]
  - Blister [Unknown]
  - Hypertonic bladder [Unknown]
  - Hypokalaemia [Unknown]
  - Dry mouth [Unknown]
  - Hypomagnesaemia [Unknown]
  - Hypoxia [Unknown]
  - Packed red blood cell transfusion [Unknown]
  - Hypoxia [Unknown]
  - Hypotension [Recovered/Resolved]
  - Pulmonary oedema [Unknown]
  - Irritable bowel syndrome [Unknown]
  - Azotaemia [Unknown]
  - Haemorrhagic anaemia [Unknown]
  - Haemorrhagic anaemia [Unknown]
  - Ulcer [Unknown]
  - Rib fracture [Unknown]
  - Device related infection [Unknown]
  - Abdominal discomfort [Unknown]
  - Nausea [Unknown]
  - Drug ineffective [Unknown]
  - Drug ineffective [Unknown]
  - Erythema [Unknown]
  - Diarrhoea [Not Recovered/Not Resolved]
